FAERS Safety Report 10042340 (Version 2)
Quarter: 2014Q1

REPORT INFORMATION
  Report Type: Spontaneous
  Country: AT (occurrence: AT)
  Receive Date: 20140327
  Receipt Date: 20140327
  Transmission Date: 20141002
  Serious: Yes (Hospitalization)
  Sender: FDA-Public Use
  Company Number: AT-TEVA-454175ISR

PATIENT
  Age: 64 Year
  Sex: Female

DRUGS (4)
  1. TRIPRIM [Suspect]
     Indication: URINARY TRACT INFECTION
     Route: 048
     Dates: start: 20131230
  2. TRIPRIM [Suspect]
     Dosage: ONE HALF TABLET
     Dates: start: 20131231
  3. ISOPTIN 80 MG [Concomitant]
     Indication: CARDIAC DISORDER
     Route: 048
  4. SERTRALINE [Concomitant]

REACTIONS (4)
  - Body temperature increased [Recovered/Resolved]
  - White blood cell count increased [Recovered/Resolved]
  - Chills [Recovered/Resolved]
  - Rhinorrhoea [Recovered/Resolved]
